FAERS Safety Report 20593964 (Version 1)
Quarter: 2022Q1

REPORT INFORMATION
  Report Type: Spontaneous
  Country: SE (occurrence: SE)
  Receive Date: 20220315
  Receipt Date: 20220315
  Transmission Date: 20220423
  Serious: Yes (Hospitalization, Other)
  Sender: FDA-Public Use
  Company Number: SE-SA-2022SA070778

PATIENT
  Age: 65 Year
  Sex: Male

DRUGS (1)
  1. ENOXAPARIN [Suspect]
     Active Substance: ENOXAPARIN
     Indication: Prophylaxis
     Dosage: UNK, INJECTION
     Route: 030

REACTIONS (5)
  - Toxic skin eruption [Recovering/Resolving]
  - Injection site erythema [Recovering/Resolving]
  - Fixed eruption [Recovering/Resolving]
  - Urticaria [Recovering/Resolving]
  - Induration [Recovering/Resolving]
